FAERS Safety Report 23539092 (Version 1)
Quarter: 2024Q1

REPORT INFORMATION
  Report Type: Spontaneous
  Country: CN (occurrence: CN)
  Receive Date: 20240219
  Receipt Date: 20240219
  Transmission Date: 20240410
  Serious: Yes (Hospitalization)
  Sender: FDA-Public Use
  Company Number: CN-MYLANLABS-2024M1015456

PATIENT
  Age: 49 Year
  Sex: Female

DRUGS (2)
  1. FORMOTEROL [Suspect]
     Active Substance: FORMOTEROL
     Indication: Asthma
     Dosage: 50 MICROGRAM, BID
     Route: 055
  2. FLUTICASONE [Suspect]
     Active Substance: FLUTICASONE
     Indication: Asthma
     Dosage: 500 MICROGRAM
     Route: 055

REACTIONS (2)
  - Citrobacter infection [Recovering/Resolving]
  - Bacterial abdominal infection [Recovering/Resolving]
